FAERS Safety Report 6253024-6 (Version None)
Quarter: 2009Q2

REPORT INFORMATION
  Report Type: 
  Country: None (occurrence: None)
  Receive Date: 20090629
  Receipt Date: 20090629
  Transmission Date: 20091009
  Serious: No
  Sender: FDA-Public Use
  Company Number: None

PATIENT
  Sex: Female
  Weight: 108.8633 kg

DRUGS (3)
  1. ISOVUE-300 [Suspect]
     Indication: NECK PAIN
     Dosage: 1ML ONE TIME EPIDURAL
     Route: 008
     Dates: start: 20090603
  2. KENALOG-40 [Suspect]
     Indication: NECK PAIN
     Dosage: 80MG ONE TIME EPIDURAL
     Route: 008
     Dates: start: 20090603
  3. BUPIVACAINE [Concomitant]

REACTIONS (5)
  - BLOOD PRESSURE INCREASED [None]
  - DIZZINESS [None]
  - FEELING ABNORMAL [None]
  - HALLUCINATION, VISUAL [None]
  - MEMORY IMPAIRMENT [None]
